FAERS Safety Report 6390771-X (Version None)
Quarter: 2009Q4

REPORT INFORMATION
  Report Type: 
  Country: None (occurrence: None)
  Receive Date: 20091001
  Receipt Date: 20090714
  Transmission Date: 20100525
  Serious: No
  Sender: FDA-Public Use
  Company Number: 1000007469

PATIENT

DRUGS (2)
  1. BYSTOLIC [Suspect]
     Dosage: ORAL
     Route: 048
     Dates: start: 20090301
  2. ASPIRIN [Concomitant]

REACTIONS (1)
  - OEDEMA MOUTH [None]
